FAERS Safety Report 20033745 (Version 2)
Quarter: 2021Q4

REPORT INFORMATION
  Report Type: Spontaneous
  Country: US (occurrence: US)
  Receive Date: 20211104
  Receipt Date: 20211125
  Transmission Date: 20220304
  Serious: No
  Sender: FDA-Public Use
  Company Number: US-PFIZER INC-202101326169

PATIENT
  Age: 37 Year
  Sex: Male
  Weight: 63.5 kg

DRUGS (2)
  1. GENOTROPIN [Suspect]
     Active Substance: SOMATROPIN
     Indication: Hypopituitarism
     Dosage: 0.6 ML, 1X/DAY
     Dates: start: 201910
  2. GENOTROPIN [Suspect]
     Active Substance: SOMATROPIN
     Indication: Addison^s disease

REACTIONS (4)
  - Drug dose omission by device [Not Recovered/Not Resolved]
  - Device defective [Not Recovered/Not Resolved]
  - Device information output issue [Not Recovered/Not Resolved]
  - Device physical property issue [Not Recovered/Not Resolved]

NARRATIVE: CASE EVENT DATE: 20210901
